FAERS Safety Report 6858838-7 (Version None)
Quarter: 2010Q3

REPORT INFORMATION
  Report Type: 
  Country: None (occurrence: None)
  Receive Date: 20100719
  Receipt Date: 20080222
  Transmission Date: 20110219
  Serious: Yes (Other)
  Sender: FDA-Public Use
  Company Number: US-PFIZER INC-2008014290

PATIENT
  Sex: Female
  Weight: 59 kg

DRUGS (3)
  1. CHANTIX [Suspect]
     Indication: SMOKING CESSATION THERAPY
     Dates: start: 20080202, end: 20080208
  2. VYTORIN [Concomitant]
  3. BENICAR [Concomitant]

REACTIONS (3)
  - NECK PAIN [None]
  - PRURITUS [None]
  - RASH GENERALISED [None]
